FAERS Safety Report 7589660-4 (Version None)
Quarter: 2011Q3

REPORT INFORMATION
  Report Type: 
  Country: None (occurrence: None)
  Receive Date: 20110705
  Receipt Date: 20110627
  Transmission Date: 20111222
  Serious: Yes (Other)
  Sender: FDA-Public Use
  Company Number: DE-ROCHE-787131

PATIENT
  Age: 63 Year
  Sex: Female

DRUGS (1)
  1. XELODA [Suspect]
     Route: 048
     Dates: start: 20110501

REACTIONS (6)
  - PRURITUS [None]
  - INSOMNIA [None]
  - RASH [None]
  - OEDEMA PERIPHERAL [None]
  - FATIGUE [None]
  - VARICOSE VEIN [None]
